FAERS Safety Report 21608810 (Version 3)
Quarter: 2022Q4

REPORT INFORMATION
  Report Type: Spontaneous
  Country: US (occurrence: US)
  Receive Date: 20221117
  Receipt Date: 20221219
  Transmission Date: 20230113
  Serious: Yes (Other)
  Sender: FDA-Public Use
  Company Number: US-PFIZER INC-PV202200104574

PATIENT
  Age: 49 Year
  Sex: Female

DRUGS (1)
  1. EUCRISA [Suspect]
     Active Substance: CRISABOROLE
     Dosage: 1X/DAY (APPLY QD TO LEGS AND ARMS)
     Route: 061

REACTIONS (7)
  - Pruritus [Not Recovered/Not Resolved]
  - Skin haemorrhage [Unknown]
  - Off label use [Unknown]
  - COVID-19 [Unknown]
  - Eczema [Not Recovered/Not Resolved]
  - Scar [Unknown]
  - Nervous system disorder [Unknown]
